FAERS Safety Report 12919464 (Version 1)
Quarter: 2016Q4

REPORT INFORMATION
  Report Type: Spontaneous
  Country: US (occurrence: US)
  Receive Date: 20161103
  Receipt Date: 20161103
  Transmission Date: 20170207
  Serious: Yes (Life-Threatening, Hospitalization)
  Sender: FDA-Public Use
  Company Number: None

PATIENT
  Age: 75 Year
  Sex: Male
  Weight: 84.3 kg

DRUGS (2)
  1. WARFARIN [Suspect]
     Active Substance: WARFARIN
     Dosage: 2.5MG OTHER PO
     Route: 048
     Dates: start: 20121018, end: 20160624
  2. WARFARIN [Suspect]
     Active Substance: WARFARIN
     Indication: PULMONARY EMBOLISM
     Route: 048
     Dates: start: 20120912, end: 20160626

REACTIONS (4)
  - Haemorrhage intracranial [None]
  - Hemiparesis [None]
  - Dysarthria [None]
  - Confusional state [None]

NARRATIVE: CASE EVENT DATE: 20160511
